FAERS Safety Report 14930833 (Version 1)
Quarter: 2018Q2

REPORT INFORMATION
  Report Type: Spontaneous
  Country: FR (occurrence: FR)
  Receive Date: 20180524
  Receipt Date: 20180524
  Transmission Date: 20180711
  Serious: Yes (Other)
  Sender: FDA-Public Use
  Company Number: FR-MERCK KGAA-2048359

PATIENT
  Age: 60 Year
  Sex: Female

DRUGS (2)
  1. NOVOTHYROX [Suspect]
     Active Substance: LEVOTHYROXINE SODIUM
     Indication: THYROID DISORDER
  2. NOVOTHYROX [Suspect]
     Active Substance: LEVOTHYROXINE SODIUM

REACTIONS (27)
  - Fear of disease [None]
  - Oedema peripheral [None]
  - Weight increased [None]
  - Amnesia [None]
  - Dry eye [None]
  - Personal relationship issue [None]
  - Gait disturbance [None]
  - Insomnia [None]
  - Dizziness [None]
  - Flatulence [None]
  - Social avoidant behaviour [None]
  - Chest pain [None]
  - Muscle spasms [None]
  - Asthenia [None]
  - Arthralgia [None]
  - Vaginal discharge [None]
  - Blood thyroid stimulating hormone increased [Recovered/Resolved]
  - Alopecia [None]
  - Impaired driving ability [None]
  - Cardiac disorder [None]
  - Loss of personal independence in daily activities [None]
  - Depression [None]
  - Mental impairment [None]
  - Abdominal pain upper [None]
  - Decreased interest [None]
  - Stress [None]
  - Abdominal distension [None]

NARRATIVE: CASE EVENT DATE: 20170314
